FAERS Safety Report 23148027 (Version 1)
Quarter: 2023Q4

REPORT INFORMATION
  Report Type: Spontaneous
  Country: PL (occurrence: PL)
  Receive Date: 20231106
  Receipt Date: 20231106
  Transmission Date: 20240110
  Serious: Yes (Other)
  Sender: FDA-Public Use
  Company Number: None

PATIENT
  Age: 68 Year
  Sex: Male

DRUGS (15)
  1. BENDAMUSTINE [Suspect]
     Active Substance: BENDAMUSTINE
     Indication: Parkinson^s disease
     Dosage: UNK
     Dates: start: 20220105, end: 20220321
  2. CISPLATIN [Suspect]
     Active Substance: CISPLATIN
     Indication: Parkinson^s disease
  3. CYCLOPHOSPHAMIDE [Suspect]
     Active Substance: CYCLOPHOSPHAMIDE
     Indication: Parkinson^s disease
     Dosage: UNK
     Dates: start: 20210409, end: 20210913
  4. CYTARABINE [Suspect]
     Active Substance: CYTARABINE
     Indication: Parkinson^s disease
  5. DOXORUBICIN [Suspect]
     Active Substance: DOXORUBICIN
     Indication: Parkinson^s disease
     Dosage: UNK
     Dates: start: 20210409, end: 20210913
  6. ETOPOSIDE [Suspect]
     Active Substance: ETOPOSIDE
     Indication: Parkinson^s disease
     Dosage: UNK
     Dates: start: 20210409, end: 20210913
  7. FLUDARABINE PHOSPHATE [Suspect]
     Active Substance: FLUDARABINE PHOSPHATE
     Indication: Parkinson^s disease
     Dosage: 25MG/M2 FOR 3 DAYS
  8. LENALIDOMIDE [Suspect]
     Active Substance: LENALIDOMIDE
     Indication: Product used for unknown indication
  9. PREDNISONE [Suspect]
     Active Substance: PREDNISONE
     Indication: Parkinson^s disease
     Dosage: UNK
     Dates: start: 20210409, end: 20210913
  10. VINCRISTINE [Suspect]
     Active Substance: VINCRISTINE
     Indication: Parkinson^s disease
     Dosage: UNK
     Dates: start: 20210409, end: 20210913
  11. TAFASITAMAB [Suspect]
     Active Substance: TAFASITAMAB
     Indication: Product used for unknown indication
  12. TISAGENLECLEUCEL [Suspect]
     Active Substance: TISAGENLECLEUCEL
     Indication: Parkinson^s disease
  13. RITUXIMAB [Suspect]
     Active Substance: RITUXIMAB
     Indication: COVID-19
     Dosage: UNK
     Dates: start: 20220620, end: 20220711
  14. DEXAMETHASONE [Suspect]
     Active Substance: DEXAMETHASONE
     Indication: Parkinson^s disease
     Dosage: 10 MG I.V. , EVERY 6 HOURS
  15. RITUXIMAB [Suspect]
     Active Substance: RITUXIMAB
     Indication: COVID-19
     Dosage: UNK
     Dates: start: 20210409, end: 20210913

REACTIONS (4)
  - Agranulocytosis [Unknown]
  - Thrombocytopenia [Unknown]
  - Infection [Unknown]
  - Immune effector cell-associated neurotoxicity syndrome [Recovering/Resolving]
